FAERS Safety Report 5396906-X (Version None)
Quarter: 2007Q3

REPORT INFORMATION
  Report Type: 
  Country: None (occurrence: None)
  Receive Date: 20070725
  Receipt Date: 20070719
  Transmission Date: 20080115
  Serious: Yes (Death, Hospitalization)
  Sender: FDA-Public Use
  Company Number: FRWYE056419JUL07

PATIENT
  Sex: Male

DRUGS (8)
  1. TAZOCILLINE [Suspect]
     Indication: OESOPHAGEAL VARICES HAEMORRHAGE
     Route: 042
     Dates: start: 20070526, end: 20070605
  2. NEXIUM [Suspect]
     Indication: OESOPHAGEAL VARICES HAEMORRHAGE
     Route: 042
     Dates: start: 20070524
  3. LASIX [Concomitant]
     Dosage: UNKNOWN
     Dates: start: 20070530, end: 20070531
  4. LASIX [Concomitant]
     Dosage: UNKNOWN
     Dates: start: 20070604
  5. SANDOSTATIN [Concomitant]
     Dosage: UNKNOWN
     Dates: start: 20070524, end: 20070530
  6. VITAMIN B1 AND B6 [Concomitant]
     Dosage: UNKNOWN
     Route: 048
     Dates: start: 20070524
  7. ZYVOX [Suspect]
     Route: 042
     Dates: start: 20070528, end: 20070605
  8. SOLU-MEDROL [Concomitant]
     Dosage: UNKNOWN
     Dates: start: 20070526

REACTIONS (10)
  - ACUTE RESPIRATORY DISTRESS SYNDROME [None]
  - CONDITION AGGRAVATED [None]
  - DISSEMINATED INTRAVASCULAR COAGULATION [None]
  - HEPATIC ENCEPHALOPATHY [None]
  - HYPOTENSION [None]
  - LACTIC ACIDOSIS [None]
  - MULTI-ORGAN FAILURE [None]
  - OLIGURIA [None]
  - RENAL FAILURE [None]
  - THROMBOCYTOPENIA [None]
